FAERS Safety Report 21358390 (Version 4)
Quarter: 2022Q4

REPORT INFORMATION
  Report Type: Spontaneous
  Country: DE (occurrence: DE)
  Receive Date: 20220921
  Receipt Date: 20221011
  Transmission Date: 20230113
  Serious: Yes (Other)
  Sender: FDA-Public Use
  Company Number: DE-ORGANON-O2209DEU001365

PATIENT
  Age: 30 Year
  Sex: Female
  Weight: 85 kg

DRUGS (1)
  1. ETONOGESTREL [Suspect]
     Active Substance: ETONOGESTREL
     Dosage: 1 IMPLANT, (1 ROD ) IN LEFT UPPER ARM
     Route: 059
     Dates: start: 20220909, end: 20220916

REACTIONS (5)
  - Device expulsion [Recovered/Resolved]
  - Implant site inflammation [Recovered/Resolved]
  - Needle issue [Recovered/Resolved]
  - Complication of device insertion [Recovered/Resolved]
  - Product quality issue [Unknown]

NARRATIVE: CASE EVENT DATE: 20220901
